FAERS Safety Report 25157931 (Version 1)
Quarter: 2025Q2

REPORT INFORMATION
  Report Type: Spontaneous
  Country: US (occurrence: US)
  Receive Date: 20250404
  Receipt Date: 20250404
  Transmission Date: 20250717
  Serious: Yes (Other)
  Sender: NOVARTIS
  Company Number: US-002147023-NVSC2025US052845

PATIENT
  Age: 43 Year

DRUGS (1)
  1. KISQALI [Suspect]
     Active Substance: RIBOCICLIB
     Indication: Breast cancer metastatic
     Dosage: 400 MG, QD (400MG FOR 2 WEEKS, 200MG FOR 1 WEEK, WEEK HOLIDAY)
     Route: 048

REACTIONS (1)
  - Cough [Unknown]
